FAERS Safety Report 19509915 (Version 7)
Quarter: 2022Q2

REPORT INFORMATION
  Report Type: Report from Study
  Country: CA (occurrence: CA)
  Receive Date: 20210709
  Receipt Date: 20220516
  Transmission Date: 20220721
  Serious: Yes (Hospitalization, Other)
  Sender: FDA-Public Use
  Company Number: CA-JNJFOC-20210214581

PATIENT
  Age: 8 Year
  Sex: Male

DRUGS (7)
  1. REMICADE [Suspect]
     Active Substance: INFLIXIMAB
     Indication: Colitis ulcerative
     Dosage: ON 03-FEB-2021, THE PATIENT RECEIVED 7TH INFLIXIMAB INFUSION FOR DOSE OF 200 MG?LAST INFUSION ON 23-
     Route: 042
     Dates: start: 20200812
  2. REMICADE [Suspect]
     Active Substance: INFLIXIMAB
     Indication: Inflammatory bowel disease
     Dosage: 8.8 (MG/KG MILLIGRAM(S)/KILOGRAM
     Route: 042
     Dates: start: 20210816
  3. REMICADE [Suspect]
     Active Substance: INFLIXIMAB
     Dosage: INFUSED ON 27-OCT-2021
     Route: 042
     Dates: start: 20210901
  4. VALPROIC ACID [Concomitant]
     Active Substance: VALPROIC ACID
     Indication: Inflammatory bowel disease
     Dosage: AS NEEDED
     Route: 065
  5. CANNABIS SATIVA SUBSP. INDICA TOP [Concomitant]
     Active Substance: CANNABIS SATIVA SUBSP. INDICA TOP
     Indication: Inflammatory bowel disease
     Route: 065
  6. RUFINAMIDE [Concomitant]
     Active Substance: RUFINAMIDE
     Indication: Inflammatory bowel disease
     Dosage: AS NEEDED
     Route: 065
  7. PREDNISONE [Concomitant]
     Active Substance: PREDNISONE
     Indication: Inflammatory bowel disease
     Route: 065

REACTIONS (13)
  - Epilepsy [Recovering/Resolving]
  - Refeeding syndrome [Unknown]
  - Haemorrhage [Recovering/Resolving]
  - Myringotomy [Recovering/Resolving]
  - Feeding disorder [Unknown]
  - Fall [Unknown]
  - Hand fracture [Unknown]
  - Gastrostomy failure [Recovered/Resolved]
  - Mouth ulceration [Unknown]
  - Selective eating disorder [Not Recovered/Not Resolved]
  - Weight increased [Unknown]
  - Off label use [Unknown]
  - Product use issue [Unknown]

NARRATIVE: CASE EVENT DATE: 20200812
